FAERS Safety Report 5810008-7 (Version None)
Quarter: 2008Q3

REPORT INFORMATION
  Report Type: 
  Country: None (occurrence: None)
  Receive Date: 20080715
  Receipt Date: 20080714
  Transmission Date: 20090109
  Serious: Yes (Other)
  Sender: FDA-Public Use
  Company Number: A0737402A

PATIENT
  Age: 24 Year
  Sex: Female
  Weight: 90.9 kg

DRUGS (3)
  1. ALLI [Suspect]
     Indication: WEIGHT LOSS DIET
     Route: 048
     Dates: start: 20080622, end: 20080706
  2. ORAL CONTRACEPTIVE [Concomitant]
  3. MULTI-VITAMIN [Concomitant]

REACTIONS (3)
  - NAUSEA [None]
  - RECTAL DISCHARGE [None]
  - RECTAL HAEMORRHAGE [None]
